FAERS Safety Report 9082182 (Version 1)
Quarter: 2013Q1

REPORT INFORMATION
  Report Type: Spontaneous
  Country: US (occurrence: US)
  Receive Date: 20130131
  Receipt Date: 20130131
  Transmission Date: 20140127
  Serious: No
  Sender: FDA-Public Use
  Company Number: US-009507513-1301USA013076

PATIENT
  Age: 57 Year
  Sex: Female

DRUGS (2)
  1. PEGINTRON [Suspect]
     Indication: HEPATITIS C
     Dosage: 120 MICROGRAM, QW
     Route: 058
     Dates: start: 20130102
  2. RIBASPHERE [Suspect]

REACTIONS (3)
  - Vomiting [Unknown]
  - Nausea [Unknown]
  - Fatigue [Unknown]
